FAERS Safety Report 7859310-8 (Version None)
Quarter: 2011Q4

REPORT INFORMATION
  Report Type: 
  Country: None (occurrence: None)
  Receive Date: 20111027
  Receipt Date: 20111019
  Transmission Date: 20120403
  Serious: Yes (Hospitalization, Other)
  Sender: FDA-Public Use
  Company Number: JP-ASTELLAS-2011JP007562

PATIENT
  Age: 43 Year
  Sex: Male

DRUGS (8)
  1. POLYGAM S/D [Concomitant]
     Route: 065
  2. POLYGAM S/D [Concomitant]
     Route: 065
  3. METHYLPREDNISOLONE [Concomitant]
     Indication: IMMUNOSUPPRESSANT DRUG THERAPY
     Dosage: 4 MG, UNKNOWN/D
     Route: 065
  4. VIDARABINE [Concomitant]
     Route: 041
  5. BASILIXIMAB [Concomitant]
     Indication: IMMUNOSUPPRESSANT DRUG THERAPY
     Route: 065
  6. PROGRAF [Suspect]
     Indication: IMMUNOSUPPRESSANT DRUG THERAPY
     Dosage: 6 MG, UNKNOWN/D
     Route: 065
  7. MYCOPHENOLATE MOFETIL [Concomitant]
     Indication: IMMUNOSUPPRESSANT DRUG THERAPY
     Dosage: 1000 MG, UNKNOWN/D
     Route: 065
  8. ACYCLOVIR [Concomitant]
     Route: 041

REACTIONS (4)
  - PNEUMONIA HERPES VIRAL [None]
  - LIVER DISORDER [None]
  - DISSEMINATED INTRAVASCULAR COAGULATION [None]
  - VARICELLA [None]
